FAERS Safety Report 13220621 (Version 1)
Quarter: 2017Q1

REPORT INFORMATION
  Report Type: Other
  Country: US (occurrence: US)
  Receive Date: 20170211
  Receipt Date: 20170211
  Transmission Date: 20170428
  Serious: No
  Sender: FDA-Public Use
  Company Number: US-ACORDA-ACO_129309_2016

PATIENT
  Age: 37 Year
  Sex: Male
  Weight: 78.46 kg

DRUGS (5)
  1. AMPYRA [Suspect]
     Active Substance: DALFAMPRIDINE
     Indication: MULTIPLE SCLEROSIS
     Dosage: 10 MG, Q 12 HRS
     Route: 048
     Dates: start: 20160704, end: 20161018
  2. GILENYA [Concomitant]
     Active Substance: FINGOLIMOD HYDROCHLORIDE
     Indication: DIZZINESS
     Dosage: 0.5 MG, QD
     Route: 048
     Dates: start: 20151204, end: 20160927
  3. GILENYA [Concomitant]
     Active Substance: FINGOLIMOD HYDROCHLORIDE
     Indication: VISION BLURRED
  4. GILENYA [Concomitant]
     Active Substance: FINGOLIMOD HYDROCHLORIDE
     Indication: INSOMNIA
  5. AMPYRA [Suspect]
     Active Substance: DALFAMPRIDINE
     Indication: VERTIGO

REACTIONS (2)
  - Off label use [Recovered/Resolved]
  - Adverse drug reaction [Recovered/Resolved]

NARRATIVE: CASE EVENT DATE: 201609
